FAERS Safety Report 9046215 (Version 1)
Quarter: 2013Q1

REPORT INFORMATION
  Report Type: Spontaneous
  Country: FR (occurrence: FR)
  Receive Date: 20130201
  Receipt Date: 20130201
  Transmission Date: 20140127
  Serious: Yes (Hospitalization)
  Sender: FDA-Public Use
  Company Number: PHHY2013FR007459

PATIENT
  Age: 65 Year
  Sex: Male

DRUGS (9)
  1. TEGRETOL [Suspect]
     Dosage: 200 MG, BID
     Route: 048
  2. TEGRETOL [Suspect]
     Dosage: DOSE DECREASED
     Route: 048
  3. MONO TILDIEM [Concomitant]
     Dosage: 300 MG, BID
     Route: 048
  4. MONO TILDIEM [Concomitant]
     Dosage: UNK UKN, UNK
     Route: 048
  5. RENITEC [Concomitant]
     Dosage: 20 MG, QD
     Route: 048
  6. DIAMICRON [Concomitant]
     Dosage: 30 MG, QD
     Route: 048
  7. SEREVENT [Concomitant]
     Dosage: 1 DF, BID
  8. PLAVIX [Concomitant]
     Dosage: 75 MG, QD
     Route: 048
  9. TAHOR [Concomitant]
     Dosage: 1 DF, QD

REACTIONS (2)
  - Fall [Recovered/Resolved]
  - Anticonvulsant drug level increased [Recovered/Resolved]
